FAERS Safety Report 10877756 (Version 2)
Quarter: 2015Q1

REPORT INFORMATION
  Report Type: Report from Study
  Country: US (occurrence: US)
  Receive Date: 20150302
  Receipt Date: 20150316
  Transmission Date: 20150721
  Serious: Yes (Hospitalization)
  Sender: FDA-Public Use
  Company Number: US-ACTELION-A-US2015-113580

PATIENT
  Age: 41 Year
  Sex: Female

DRUGS (3)
  1. COUMADIN [Concomitant]
     Active Substance: WARFARIN SODIUM
  2. VELETRI [Suspect]
     Active Substance: EPOPROSTENOL
     Indication: PULMONARY ARTERIAL HYPERTENSION
     Dosage: 49 NG/KG, PER MIN
     Route: 042
     Dates: start: 20110525
  3. ADCIRCA [Concomitant]
     Active Substance: TADALAFIL

REACTIONS (1)
  - Atrial fibrillation [Unknown]

NARRATIVE: CASE EVENT DATE: 20150210
